FAERS Safety Report 15147002 (Version 21)
Quarter: 2020Q3

REPORT INFORMATION
  Report Type: Report from Study
  Country: DE (occurrence: DE)
  Receive Date: 20180716
  Receipt Date: 20200917
  Transmission Date: 20201102
  Serious: Yes (Hospitalization, Other)
  Sender: FDA-Public Use
  Company Number: DE-BIOGEN-2018BI00594706

PATIENT
  Age: 54 Year
  Sex: Female
  Weight: 67 kg

DRUGS (22)
  1. FAMPYRA [Suspect]
     Active Substance: DALFAMPRIDINE
     Indication: MUSCLE SPASTICITY
     Route: 050
     Dates: start: 20111214
  2. EUTIROX [Concomitant]
     Active Substance: LEVOTHYROXINE SODIUM
     Indication: THYROID MALFORMATION
     Route: 050
     Dates: start: 201106
  3. FAMPYRA [Suspect]
     Active Substance: DALFAMPRIDINE
     Route: 050
     Dates: start: 20120607
  4. BACLOFEN. [Concomitant]
     Active Substance: BACLOFEN
     Dosage: 0.5 DAYS
     Route: 050
  5. MODAFINIL. [Concomitant]
     Active Substance: MODAFINIL
     Indication: FATIGUE
     Route: 050
     Dates: start: 20140430
  6. PANTOPRAZOLE [Concomitant]
     Active Substance: PANTOPRAZOLE
     Indication: PROPHYLAXIS
     Route: 050
     Dates: start: 20160113
  7. SIRDALUD [Concomitant]
     Active Substance: TIZANIDINE
     Indication: OEDEMA
     Route: 050
     Dates: start: 20180803, end: 20180912
  8. IBUPROFEN. [Concomitant]
     Active Substance: IBUPROFEN
     Indication: MUSCLE SPASTICITY
     Route: 050
     Dates: start: 20180803
  9. MAVENCLAD [Suspect]
     Active Substance: CLADRIBINE
     Indication: SECONDARY PROGRESSIVE MULTIPLE SCLEROSIS
     Route: 050
     Dates: start: 20180601, end: 20180602
  10. MAVENCLAD [Suspect]
     Active Substance: CLADRIBINE
     Dosage: FIRST WEEK THERAPY: TWO TABLETS ON DAY 1 AND ONE TABLET ON DAYS 2 AND 3
     Route: 050
     Dates: start: 20180601, end: 20180603
  11. PANTOPRAZOLE [Concomitant]
     Active Substance: PANTOPRAZOLE
     Route: 050
     Dates: start: 20140312
  12. EUTIROX [Concomitant]
     Active Substance: LEVOTHYROXINE SODIUM
     Route: 050
  13. SERTRALINE [Concomitant]
     Active Substance: SERTRALINE HYDROCHLORIDE
     Indication: DEPRESSION
     Route: 050
     Dates: start: 20180905, end: 2018
  14. PANTOPRAZOLE [Concomitant]
     Active Substance: PANTOPRAZOLE
     Route: 050
  15. FAMPYRA [Suspect]
     Active Substance: DALFAMPRIDINE
     Route: 050
     Dates: start: 20140624
  16. ELTIROX [Concomitant]
     Indication: THYROID MALFORMATION
     Route: 050
     Dates: start: 201106
  17. BACLOFEN. [Concomitant]
     Active Substance: BACLOFEN
     Route: 050
     Dates: start: 20140430
  18. BACLOFEN. [Concomitant]
     Active Substance: BACLOFEN
     Indication: MUSCLE SPASTICITY
     Route: 050
     Dates: start: 20140312
  19. L?THYROX [Concomitant]
     Active Substance: LEVOTHYROXINE SODIUM
     Indication: THYROID DISORDER
     Route: 050
     Dates: start: 201106
  20. ZINBRYTA [Suspect]
     Active Substance: DACLIZUMAB
     Indication: RELAPSING-REMITTING MULTIPLE SCLEROSIS
     Route: 050
     Dates: start: 20170906, end: 20180228
  21. MAVENCLAD [Suspect]
     Active Substance: CLADRIBINE
     Route: 050
  22. ORTOTON [Concomitant]
     Indication: PAIN
     Route: 050
     Dates: start: 20180802, end: 2018

REACTIONS (12)
  - Pain [Not Recovered/Not Resolved]
  - Decreased appetite [Recovered/Resolved]
  - Dermatitis allergic [Recovered/Resolved with Sequelae]
  - Abdominal pain [Recovered/Resolved]
  - Drug hypersensitivity [Not Recovered/Not Resolved]
  - Hypersensitivity [Recovered/Resolved]
  - Nausea [Recovered/Resolved]
  - Alopecia [Recovered/Resolved]
  - Headache [Recovered/Resolved]
  - Peripheral swelling [Unknown]
  - Madarosis [Recovered/Resolved]
  - Flank pain [Unknown]

NARRATIVE: CASE EVENT DATE: 201805
